FAERS Safety Report 8267186-2 (Version None)
Quarter: 2012Q2

REPORT INFORMATION
  Report Type: 
  Country: None (occurrence: None)
  Receive Date: 20120409
  Receipt Date: 20120403
  Transmission Date: 20120825
  Serious: Yes (Other)
  Sender: FDA-Public Use
  Company Number: US-PFIZER INC-2012084663

PATIENT
  Sex: Male

DRUGS (5)
  1. PRISTIQ [Suspect]
     Indication: DEPRESSION
     Dosage: 50 MG, 1X/DAY
     Route: 048
     Dates: start: 20090428
  2. LUNESTA [Concomitant]
     Indication: SLEEP DISORDER
     Dosage: UNK
  3. PRISTIQ [Suspect]
     Dosage: 100 MG, 1X/DAY
     Route: 048
     Dates: end: 20111201
  4. PRISTIQ [Suspect]
     Dosage: 300 MG, 1X/DAY
     Route: 048
     Dates: start: 20120101
  5. PRISTIQ [Suspect]
     Dosage: 200 MG, 1X/DAY
     Route: 048
     Dates: start: 20111201, end: 20120101

REACTIONS (5)
  - PROSTATE CANCER [None]
  - SUICIDAL IDEATION [None]
  - PAIN [None]
  - SHOULDER ARTHROPLASTY [None]
  - DRUG RESISTANCE [None]
